FAERS Safety Report 4413450-4 (Version None)
Quarter: 2004Q2

REPORT INFORMATION
  Report Type: 
  Country: None (occurrence: None)
  Receive Date: 20040630
  Receipt Date: 20040319
  Transmission Date: 20050107
  Serious: No
  Sender: FDA-Public Use
  Company Number: 04P-163-0254283-00

PATIENT
  Age: 65 Year
  Sex: Male

DRUGS (9)
  1. HUMIRA [Suspect]
     Indication: RHEUMATOID ARTHRITIS
     Dosage: 40 MG, 1 IN 2 WK, SUBCUTANEOUS
     Route: 058
     Dates: start: 20031023, end: 20031218
  2. PREDNISONE TAB [Concomitant]
  3. FOLIC ACID [Concomitant]
  4. OXYCOCET [Concomitant]
  5. CEFAZOLIN SODIUM [Concomitant]
  6. CARDURA [Concomitant]
  7. ESOMEPRAZOLE [Concomitant]
  8. TOCOPHEROL CONCENTRATE CAP [Concomitant]
  9. SULFASALAZINE [Concomitant]

REACTIONS (2)
  - DRUG INEFFECTIVE [None]
  - PNEUMONIA [None]
